FAERS Safety Report 5669589-9 (Version None)
Quarter: 2008Q1

REPORT INFORMATION
  Report Type: 
  Country: None (occurrence: None)
  Receive Date: 20080312
  Receipt Date: 20080312
  Transmission Date: 20080703
  Serious: Yes (Other)
  Sender: FDA-Public Use
  Company Number: None

PATIENT
  Sex: Male
  Weight: 42 kg

DRUGS (3)
  1. VANCOMYCIN [Suspect]
     Indication: CENTRAL LINE INFECTION
     Dosage: 633 MG Q8 IV
     Route: 042
     Dates: start: 20080210, end: 20080214
  2. CEFOTAXIME [Concomitant]
  3. CLINDAMYCIN HCL [Concomitant]

REACTIONS (4)
  - HYPOALBUMINAEMIA [None]
  - PYREXIA [None]
  - RASH GENERALISED [None]
  - WHEEZING [None]
